FAERS Safety Report 24336185 (Version 1)
Quarter: 2024Q3

REPORT INFORMATION
  Report Type: Spontaneous
  Country: LV (occurrence: LV)
  Receive Date: 20240919
  Receipt Date: 20240919
  Transmission Date: 20241017
  Serious: No
  Sender: ROCHE
  Company Number: LV-ROCHE-3510214

PATIENT
  Age: 44 Year
  Sex: Female
  Weight: 58.0 kg

DRUGS (1)
  1. TAMIFLU [Suspect]
     Active Substance: OSELTAMIVIR PHOSPHATE
     Indication: Product used for unknown indication
     Route: 065
     Dates: start: 20240210

REACTIONS (3)
  - Skin irritation [Unknown]
  - Sleep disorder [Unknown]
  - Discomfort [Unknown]
